FAERS Safety Report 4726486-0 (Version None)
Quarter: 2005Q3

REPORT INFORMATION
  Report Type: 
  Country: None (occurrence: None)
  Receive Date: 20050726
  Receipt Date: 20050711
  Transmission Date: 20060218
  Serious: Yes (Life-Threatening, Hospitalization)
  Sender: FDA-Public Use
  Company Number: T05-FIN-02514-01

PATIENT
  Age: 44 Year
  Sex: Female

DRUGS (7)
  1. ESCITALOPRAM OXALATE [Suspect]
     Indication: ALCOHOLISM
     Dosage: 800 MG ONCE
     Dates: start: 20050614, end: 20050614
  2. ESCITALOPRAM OXALATE [Suspect]
     Indication: DEPRESSION
     Dosage: 800 MG ONCE
     Dates: start: 20050614, end: 20050614
  3. ESCITALOPRAM OXALATE [Suspect]
     Indication: ALCOHOLISM
     Dosage: 20 MG QD
     Dates: start: 20050503
  4. ESCITALOPRAM OXALATE [Suspect]
     Indication: DEPRESSION
     Dosage: 20 MG QD
     Dates: start: 20050503
  5. ALCOHOL [Concomitant]
  6. DIAZEPAM [Concomitant]
  7. LANEXAT (FLUMAZENIL) [Concomitant]

REACTIONS (13)
  - ALCOHOL POISONING [None]
  - BLOOD PRESSURE DIASTOLIC DECREASED [None]
  - CONVULSION [None]
  - DEPRESSION [None]
  - DIZZINESS [None]
  - INJURY [None]
  - INTENTIONAL MISUSE [None]
  - JOINT SWELLING [None]
  - LOSS OF CONSCIOUSNESS [None]
  - OVERDOSE [None]
  - POISONING [None]
  - SUICIDE ATTEMPT [None]
  - WHEEZING [None]
